FAERS Safety Report 9286738 (Version 1)
Quarter: 2012Q4

REPORT INFORMATION
  Report Type: Spontaneous
  Country: US (occurrence: None)
  Receive Date: 20120912
  Receipt Date: 20120912
  Transmission Date: 20130627
  Serious: Yes (Other)
  Sender: FDA-Public Use
  Company Number: 2011MA015545

PATIENT
  Sex: Female
  Weight: 90.72 kg

DRUGS (14)
  1. METOCLOPRAMIDE TABLETS USP, 10 MG (PUREPAC) [Suspect]
     Route: 048
     Dates: start: 20090917, end: 20091017
  2. ASCENSIA [Concomitant]
  3. BACLOFEN [Concomitant]
  4. CYMBALTA [Concomitant]
  5. DILTIAZEM [Concomitant]
  6. GLIMEPIRIDE [Concomitant]
  7. JANUMET [Concomitant]
  8. LEVOTHYROXINE [Concomitant]
  9. LYRICA [Concomitant]
  10. ONDANSETRON [Concomitant]
  11. OXYCODONE [Concomitant]
  12. PROMETHAZINE [Concomitant]
  13. PROPRANOLOL [Concomitant]
  14. SPIRONOLACTONE [Concomitant]

REACTIONS (3)
  - Dystonia [None]
  - Emotional disorder [None]
  - Economic problem [None]
